FAERS Safety Report 4618600-2 (Version None)
Quarter: 2005Q1

REPORT INFORMATION
  Report Type: 
  Country: None (occurrence: None)
  Receive Date: 20050323
  Receipt Date: 20050318
  Transmission Date: 20050727
  Serious: Yes (Hospitalization)
  Sender: FDA-Public Use
  Company Number: E044-318-3735

PATIENT
  Age: 80 Year
  Sex: Male
  Weight: 78 kg

DRUGS (8)
  1. DONEPEZIL HCL [Suspect]
     Indication: DEMENTIA
     Dosage: SEE IMAGE
     Route: 048
     Dates: start: 20041116, end: 20041214
  2. DONEPEZIL HCL [Suspect]
     Indication: DEMENTIA
     Dosage: SEE IMAGE
     Route: 048
     Dates: start: 20041215
  3. DONEPEZIL/PLACEBO (DONEPEZIL HYDROCHLORIDE) [Suspect]
     Indication: DEMENTIA
     Dosage: DOUBLEBLIND, 1 IN 1 D, ORAL
     Route: 048
     Dates: start: 20040513, end: 20041115
  4. CEFIXIM (CEFIXIME) [Suspect]
     Indication: LYMPHADENITIS
     Dosage: 400 MG , ORAL
     Route: 048
     Dates: start: 20050303, end: 20050312
  5. LEVODOPA AND BENSARAZID (MADOPAR) [Concomitant]
  6. LEVODOPA AND CARBIDOPA (SINEMET) [Concomitant]
  7. ENTACAPON (ENTACAPONE) [Concomitant]
  8. QUETIAPIN (QUETIAPINE) [Concomitant]

REACTIONS (3)
  - AKINESIA [None]
  - JUGULAR VEIN THROMBOSIS [None]
  - SUBCLAVIAN VEIN THROMBOSIS [None]
